FAERS Safety Report 9676375 (Version 1)
Quarter: 2013Q4

REPORT INFORMATION
  Report Type: Spontaneous
  Country: US (occurrence: US)
  Receive Date: 20131107
  Receipt Date: 20131107
  Transmission Date: 20140711
  Serious: Yes (Hospitalization)
  Sender: FDA-Public Use
  Company Number: US-B.I. PHARMACEUTICALS,INC./RIDGEFIELD-2013-BI-35215BP

PATIENT
  Age: 84 Year
  Sex: Female

DRUGS (1)
  1. PRADAXA [Suspect]
     Indication: PULMONARY EMBOLISM
     Dates: start: 201307, end: 20131026

REACTIONS (5)
  - Hip fracture [Not Recovered/Not Resolved]
  - Thoracic haemorrhage [Recovered/Resolved]
  - Off label use [Recovered/Resolved]
  - Fall [Recovered/Resolved]
  - International normalised ratio increased [Not Recovered/Not Resolved]
